FAERS Safety Report 24585728 (Version 1)
Quarter: 2024Q4

REPORT INFORMATION
  Report Type: Spontaneous
  Country: IT (occurrence: IT)
  Receive Date: 20241106
  Receipt Date: 20241106
  Transmission Date: 20250114
  Serious: Yes (Other)
  Sender: DAIICHI
  Company Number: IT-DSJP-DS-2024-104553-IT

PATIENT
  Age: 40 Year
  Sex: Female

DRUGS (2)
  1. ENHERTU [Suspect]
     Active Substance: FAM-TRASTUZUMAB DERUXTECAN-NXKI
     Indication: Breast cancer metastatic
     Dosage: UNK UNK, CYCLIC
     Route: 065
  2. ENHERTU [Suspect]
     Active Substance: FAM-TRASTUZUMAB DERUXTECAN-NXKI
     Dosage: UNK UNK, CYCLIC (RECHALLENGED DOSE)
     Route: 065

REACTIONS (2)
  - Metastases to lymph nodes [Unknown]
  - Interstitial lung disease [Recovered/Resolved]
